FAERS Safety Report 14847962 (Version 1)
Quarter: 2018Q2

REPORT INFORMATION
  Report Type: Report from Study
  Country: CA (occurrence: CA)
  Receive Date: 20180504
  Receipt Date: 20180504
  Transmission Date: 20180711
  Serious: Yes (Death, Other)
  Sender: FDA-Public Use
  Company Number: CA-BAYER-2018-081104

PATIENT
  Age: 82 Year
  Sex: Female

DRUGS (1)
  1. ADEMPAS [Suspect]
     Active Substance: RIOCIGUAT
     Indication: PULMONARY HYPERTENSION
     Dosage: 0.5 MG, TID
     Route: 048
     Dates: start: 20180424

REACTIONS (9)
  - Somnolence [Recovering/Resolving]
  - Blood pressure diastolic decreased [Unknown]
  - Unresponsive to stimuli [Recovering/Resolving]
  - Confusional state [Unknown]
  - Blood pressure decreased [None]
  - Decreased appetite [None]
  - Blood pressure diastolic decreased [Recovering/Resolving]
  - Death [Fatal]
  - Eyelid disorder [Not Recovered/Not Resolved]

NARRATIVE: CASE EVENT DATE: 2018
